FAERS Safety Report 6103680-8 (Version None)
Quarter: 2009Q1

REPORT INFORMATION
  Report Type: 
  Country: None (occurrence: None)
  Receive Date: 20090302
  Receipt Date: 20090209
  Transmission Date: 20090719
  Serious: Yes (Other)
  Sender: FDA-Public Use
  Company Number: 197674

PATIENT
  Age: 5 Year
  Sex: Female

DRUGS (5)
  1. VINCRISTINE SULFATE [Suspect]
     Indication: ACUTE LYMPHOCYTIC LEUKAEMIA
     Dosage: SEE IMAGE
  2. VORICONAZOLE [Suspect]
     Indication: ANTIFUNGAL TREATMENT
     Dosage: ORAL
     Route: 048
  3. ANTIBIOTICS [Concomitant]
  4. AMPHOTERICIN B [Concomitant]
  5. LEVOFLOXACIN [Concomitant]

REACTIONS (6)
  - DRUG INTERACTION [None]
  - FEBRILE NEUTROPENIA [None]
  - HEPATIC INFECTION FUNGAL [None]
  - NEUROPATHY PERIPHERAL [None]
  - PERONEAL NERVE PALSY [None]
  - THERAPEUTIC AGENT TOXICITY [None]
